FAERS Safety Report 8950753 (Version 1)
Quarter: 2012Q4

REPORT INFORMATION
  Report Type: 
  Country: US (occurrence: US)
  Receive Date: 20121206
  Receipt Date: 20121206
  Transmission Date: 20130627
  Serious: Yes (Other)
  Sender: FDA-Public Use
  Company Number: US-ALLERGAN-1214722US

PATIENT
  Age: 89 Year
  Sex: Female

DRUGS (2)
  1. REFRESH OPTIVE ADVANCED [Suspect]
     Indication: DRUG USE FOR UNKNOWN INDICATION
     Dosage: UNK
     Route: 047
     Dates: start: 20121016, end: 20121023
  2. RESTASIS� [Concomitant]
     Indication: SJOGREN^S SYNDROME
     Dosage: 2 Gtt, bid
     Route: 047

REACTIONS (5)
  - Visual acuity reduced [Unknown]
  - Eye pain [Unknown]
  - Foreign body sensation in eyes [Unknown]
  - Foreign body sensation in eyes [Unknown]
  - Eye disorder [Unknown]
